FAERS Safety Report 6418096-4 (Version None)
Quarter: 2009Q4

REPORT INFORMATION
  Report Type: 
  Country: None (occurrence: None)
  Receive Date: 20091026
  Receipt Date: 20091013
  Transmission Date: 20100525
  Serious: Yes (Hospitalization, Other)
  Sender: FDA-Public Use
  Company Number: ADR38352009

PATIENT
  Age: 65 Year
  Sex: Male

DRUGS (5)
  1. SIMVASTATIN [Suspect]
     Indication: HYPERCHOLESTEROLAEMIA
     Dosage: 40 MG, ORAL
     Route: 048
     Dates: start: 20080314, end: 20080509
  2. ASPIRIN [Concomitant]
  3. BISOPROLOL [Concomitant]
  4. MEBEVERINE HYDROCHLORIDE [Concomitant]
  5. RAMIPRIL [Concomitant]

REACTIONS (5)
  - ABDOMINAL PAIN [None]
  - ANEURYSM [None]
  - DIARRHOEA [None]
  - TENDERNESS [None]
  - VOMITING [None]
